FAERS Safety Report 4389158-0 (Version None)
Quarter: 2004Q3

REPORT INFORMATION
  Report Type: 
  Country: None (occurrence: None)
  Receive Date: 20040702
  Receipt Date: 20040506
  Transmission Date: 20050211
  Serious: No
  Sender: FDA-Public Use
  Company Number: US-GLAXOSMITHKLINE-A0509857A

PATIENT
  Age: 78 Year
  Sex: Female

DRUGS (2)
  1. PARNATE [Suspect]
     Indication: DEPRESSION
     Dosage: 30MG THREE TIMES PER DAY
     Route: 048
     Dates: start: 19640101
  2. STELAZINE [Concomitant]

REACTIONS (1)
  - SOMNOLENCE [None]
